FAERS Safety Report 7687129-X (Version None)
Quarter: 2011Q3

REPORT INFORMATION
  Report Type: 
  Country: None (occurrence: None)
  Receive Date: 20110816
  Receipt Date: 20110804
  Transmission Date: 20111222
  Serious: Yes (Hospitalization)
  Sender: FDA-Public Use
  Company Number: NL-SANOFI-AVENTIS-2011SA044115

PATIENT
  Age: 79 Year
  Sex: Male
  Weight: 102 kg

DRUGS (5)
  1. DRONEDARONE HCL [Suspect]
     Indication: ATRIAL FIBRILLATION
     Route: 048
     Dates: start: 20101123
  2. ATENOLOL [Concomitant]
  3. DILTIAZEM [Concomitant]
  4. IRBESARTAN [Concomitant]
  5. ACENOCOUMAROL [Concomitant]

REACTIONS (1)
  - CARDIAC FAILURE [None]
